FAERS Safety Report 8875508 (Version 1)
Quarter: 2012Q4

REPORT INFORMATION
  Report Type: Report from Study
  Country: US (occurrence: US)
  Receive Date: 20121030
  Receipt Date: 20121030
  Transmission Date: 20130627
  Serious: No
  Sender: FDA-Public Use
  Company Number: US-ABBOTT-12P-163-0970537-00

PATIENT
  Age: 50 Year
  Sex: Female
  Weight: 69.92 kg

DRUGS (2)
  1. LUPRON DEPOT 3.75 MG [Suspect]
     Indication: UTERINE LEIOMYOMA
     Dates: start: 20120816
  2. CITALOPRAM [Concomitant]
     Indication: ANXIETY

REACTIONS (2)
  - Dysmenorrhoea [Recovering/Resolving]
  - Menorrhagia [Recovering/Resolving]
